FAERS Safety Report 7536716 (Version 4)
Quarter: 2014Q1

REPORT INFORMATION
  Report Type: Spontaneous
  Country: US (occurrence: US)
  Receive Date: 20100811
  Receipt Date: 20140123
  Transmission Date: 20141002
  Serious: Yes (Hospitalization, Other)
  Sender: FDA-Public Use
  Company Number: US-BAYER-201030176NA

PATIENT
  Age: 32 Year
  Sex: Female
  Weight: 68.03 kg

DRUGS (3)
  1. YAZ [Suspect]
     Indication: PRODUCT USED FOR UNKNOWN INDICATION
     Dosage: UNK UNK, QD
     Route: 048
     Dates: start: 200706, end: 2009
  2. OCELLA [Suspect]
     Indication: PRODUCT USED FOR UNKNOWN INDICATION
     Dosage: UNK
     Dates: start: 200903, end: 2010
  3. LEVOXYL [Concomitant]
     Dosage: 0.075 MG, QD
     Route: 048

REACTIONS (3)
  - Gallbladder non-functioning [Unknown]
  - Injury [None]
  - Cholecystitis acute [None]
